FAERS Safety Report 19120608 (Version 1)
Quarter: 2021Q2

REPORT INFORMATION
  Report Type: Spontaneous
  Country: US (occurrence: US)
  Receive Date: 20210410
  Receipt Date: 20210410
  Transmission Date: 20210717
  Serious: Yes (Hospitalization, Disabling)
  Sender: FDA-Public Use
  Company Number: None

PATIENT
  Age: 72 Year
  Sex: Female
  Weight: 65.7 kg

DRUGS (1)
  1. PROLIA [Suspect]
     Active Substance: DENOSUMAB
     Indication: OSTEOPOROSIS
     Dosage: ?          QUANTITY:40 INJECTION(S);OTHER FREQUENCY:EVERY 6 MONTHS;?
     Route: 058

REACTIONS (7)
  - Rash [None]
  - Inflammatory bowel disease [None]
  - Pain [None]
  - Skin ulcer [None]
  - Immune system disorder [None]
  - Fatigue [None]
  - Quality of life decreased [None]

NARRATIVE: CASE EVENT DATE: 20201122
